FAERS Safety Report 16788346 (Version 1)
Quarter: 2019Q3

REPORT INFORMATION
  Report Type: Report from Study
  Country: US (occurrence: US)
  Receive Date: 20190910
  Receipt Date: 20190910
  Transmission Date: 20191005
  Serious: No
  Sender: FDA-Public Use
  Company Number: PHEH2019US036963

PATIENT
  Sex: Female

DRUGS (1)
  1. COSENTYX [Suspect]
     Active Substance: SECUKINUMAB
     Indication: PRODUCT USED FOR UNKNOWN INDICATION
     Dosage: 300 MG, QW
     Route: 030
     Dates: start: 20190825

REACTIONS (6)
  - Asthenia [Unknown]
  - Headache [Unknown]
  - Oropharyngeal pain [Unknown]
  - Nausea [Unknown]
  - Incorrect route of product administration [Unknown]
  - Dizziness [Unknown]
